FAERS Safety Report 15319741 (Version 3)
Quarter: 2018Q4

REPORT INFORMATION
  Report Type: Report from Study
  Country: US (occurrence: US)
  Receive Date: 20180827
  Receipt Date: 20181205
  Transmission Date: 20190204
  Serious: Yes (Other)
  Sender: FDA-Public Use
  Company Number: PHEH2018US035041

PATIENT
  Sex: Female

DRUGS (2)
  1. COSENTYX [Suspect]
     Active Substance: SECUKINUMAB
     Dosage: 150 MG, QMO
     Route: 058
  2. COSENTYX [Suspect]
     Active Substance: SECUKINUMAB
     Indication: ANKYLOSING SPONDYLITIS
     Dosage: 150 MG, QW
     Route: 058

REACTIONS (10)
  - Muscle spasms [Unknown]
  - Ankylosing spondylitis [Unknown]
  - Dysphonia [Unknown]
  - Stress [Unknown]
  - Hypoaesthesia [Unknown]
  - Therapeutic response shortened [Unknown]
  - Back pain [Unknown]
  - Disturbance in attention [Unknown]
  - Eye pain [Unknown]
  - Fatigue [Unknown]
